FAERS Safety Report 11036874 (Version 1)
Quarter: 2015Q2

REPORT INFORMATION
  Report Type: Spontaneous
  Country: US (occurrence: None)
  Receive Date: 20150415
  Receipt Date: 20150415
  Transmission Date: 20150821
  Serious: Yes (Life-Threatening, Hospitalization)
  Sender: FDA-Public Use
  Company Number: None

PATIENT
  Age: 57 Year
  Sex: Female

DRUGS (1)
  1. PSYLLIUM [Suspect]
     Active Substance: PLANTAGO SEED
     Indication: OCCUPATIONAL EXPOSURE TO PRODUCT

REACTIONS (2)
  - Anaphylactic reaction [None]
  - Occupational exposure to product [None]

NARRATIVE: CASE EVENT DATE: 20141218
